FAERS Safety Report 8164119-4 (Version None)
Quarter: 2012Q1

REPORT INFORMATION
  Report Type: 
  Country: None (occurrence: None)
  Receive Date: 20120224
  Receipt Date: 20120222
  Transmission Date: 20120608
  Serious: Yes (Other)
  Sender: FDA-Public Use
  Company Number: VE-PFIZER INC-2012040903

PATIENT
  Age: 42 Year
  Sex: Female

DRUGS (2)
  1. VARENICLINE TARTRATE [Suspect]
     Dosage: 1 MG, 1X/DAY
     Route: 048
     Dates: start: 20120128, end: 20120211
  2. VARENICLINE TARTRATE [Suspect]
     Indication: SMOKING CESSATION THERAPY
     Dosage: 0.5 MG, 1X/DAY
     Route: 048
     Dates: start: 20120120, end: 20120127

REACTIONS (3)
  - PRURITUS GENERALISED [None]
  - SWELLING FACE [None]
  - RASH MACULAR [None]
